FAERS Safety Report 8085353-8 (Version None)
Quarter: 2012Q1

REPORT INFORMATION
  Report Type: 
  Country: None (occurrence: None)
  Receive Date: 20120128
  Receipt Date: 20110506
  Transmission Date: 20120608
  Serious: Yes (Other)
  Sender: FDA-Public Use
  Company Number: US-ABBOTT-10P-163-0634859-00

PATIENT
  Sex: Female
  Weight: 70.824 kg

DRUGS (5)
  1. VITAMIN D [Concomitant]
     Indication: VITAMIN D DECREASED
  2. ACTONEL [Concomitant]
     Indication: OSTEOPENIA
     Dates: start: 20080801
  3. NEXIUM [Concomitant]
     Indication: GASTROOESOPHAGEAL REFLUX DISEASE
  4. HUMIRA [Suspect]
     Indication: RHEUMATOID ARTHRITIS
     Route: 058
     Dates: start: 20080820, end: 20091202
  5. HUMIRA [Suspect]
     Dates: start: 20110219

REACTIONS (3)
  - LUNG NEOPLASM [None]
  - BENIGN BREAST NEOPLASM [None]
  - BREAST CANCER [None]
